FAERS Safety Report 19992513 (Version 1)
Quarter: 2021Q4

REPORT INFORMATION
  Report Type: Spontaneous
  Country: ES (occurrence: ES)
  Receive Date: 20211026
  Receipt Date: 20211026
  Transmission Date: 20220303
  Serious: Yes (Hospitalization, Other)
  Sender: FDA-Public Use
  Company Number: ES-AEMPS-1022803

PATIENT
  Age: 89 Year
  Sex: Female

DRUGS (6)
  1. LOSARTAN AND HYDROCHLOROTHIAZIDE [Suspect]
     Active Substance: HYDROCHLOROTHIAZIDE\LOSARTAN POTASSIUM
     Indication: Hypertension
     Dosage: UNK (1.0 COMP C/24 H )
     Route: 048
     Dates: start: 20170825, end: 20200704
  2. CARVEDILOL [Concomitant]
     Active Substance: CARVEDILOL
     Indication: Hypertension
     Dosage: UNK (12.5 MG A-DECE )
     Route: 048
     Dates: start: 20100624
  3. CHOLECALCIFEROL [Concomitant]
     Active Substance: CHOLECALCIFEROL
     Indication: Osteoporosis
     Dosage: UNK (25000.0 IU C/15 DAYS)
     Route: 048
     Dates: start: 20161029
  4. ELIQUIS [Concomitant]
     Active Substance: APIXABAN
     Indication: Atrial fibrillation
     Dosage: UNK (2.5 MG C/12 H)
     Route: 048
     Dates: start: 20190816
  5. Omeprazol almus [Concomitant]
     Indication: Pharyngitis
     Dosage: UNK (40.0 MG A-DE)
     Route: 048
     Dates: start: 20141216
  6. Zolpidem cinfa [Concomitant]
     Indication: Insomnia
     Dosage: UNK(10.0 MG C/24 H NOC)
     Route: 048
     Dates: start: 20140505

REACTIONS (1)
  - Acute kidney injury [Recovered/Resolved]

NARRATIVE: CASE EVENT DATE: 20200704
